FAERS Safety Report 5689321-2 (Version None)
Quarter: 2008Q1

REPORT INFORMATION
  Report Type: 
  Country: None (occurrence: None)
  Receive Date: 20080331
  Receipt Date: 20080320
  Transmission Date: 20080703
  Serious: Yes (Other)
  Sender: FDA-Public Use
  Company Number: US-PFIZER INC-2008025562

PATIENT
  Sex: Female
  Weight: 59.09 kg

DRUGS (5)
  1. LIPITOR [Suspect]
     Indication: BLOOD CHOLESTEROL INCREASED
     Dates: start: 19970101, end: 20080301
  2. LIPITOR [Suspect]
     Indication: BLOOD TRIGLYCERIDES INCREASED
  3. GLIPIZIDE [Concomitant]
  4. METFORMIN HCL [Concomitant]
  5. ACETYLSALICYLIC ACID SRT [Concomitant]

REACTIONS (10)
  - ACTIVITIES OF DAILY LIVING IMPAIRED [None]
  - ASTHENIA [None]
  - BLOOD CHOLESTEROL INCREASED [None]
  - BLOOD TRIGLYCERIDES INCREASED [None]
  - FIBROMYALGIA [None]
  - INFLUENZA LIKE ILLNESS [None]
  - MYALGIA [None]
  - PAIN [None]
  - PAIN IN EXTREMITY [None]
  - PYREXIA [None]
